FAERS Safety Report 10119509 (Version 1)
Quarter: 2020Q3

REPORT INFORMATION
  Report Type: Report from Study
  Country: US (occurrence: US)
  Receive Date: 20140425
  Receipt Date: 20140425
  Transmission Date: 20201105
  Serious: Yes (Hospitalization)
  Sender: FDA-Public Use
  Company Number: US-JNJFOC-20140416427

PATIENT
  Age: 69 Year
  Sex: Female
  Weight: 46.9 kg

DRUGS (2)
  1. IBRUTINIB [Suspect]
     Active Substance: IBRUTINIB
     Route: 048
  2. IBRUTINIB [Suspect]
     Active Substance: IBRUTINIB
     Indication: LYMPHOMA
     Route: 048
     Dates: start: 20130619, end: 20140329

REACTIONS (1)
  - Aortic intramural haematoma [Not Recovered/Not Resolved]

NARRATIVE: CASE EVENT DATE: 20140329
